FAERS Safety Report 11487164 (Version 1)
Quarter: 2015Q3

REPORT INFORMATION
  Report Type: Spontaneous
  Country: US (occurrence: US)
  Receive Date: 20150910
  Receipt Date: 20150910
  Transmission Date: 20151125
  Serious: No
  Sender: FDA-Public Use
  Company Number: US-PFIZER INC-2015295923

PATIENT
  Age: 70 Year
  Sex: Male
  Weight: 131.52 kg

DRUGS (1)
  1. VIAGRA [Suspect]
     Active Substance: SILDENAFIL CITRATE
     Dosage: UNK

REACTIONS (6)
  - Pain [Unknown]
  - Feeling abnormal [Unknown]
  - Memory impairment [Unknown]
  - Migraine [Unknown]
  - Blood pressure fluctuation [Unknown]
  - Anger [Unknown]

NARRATIVE: CASE EVENT DATE: 2015
